FAERS Safety Report 8578534-8 (Version None)
Quarter: 2012Q2

REPORT INFORMATION
  Report Type: 
  Country: None (occurrence: None)
  Receive Date: 20120423
  Receipt Date: 20100623
  Transmission Date: 20120825
  Serious: Yes (Hospitalization)
  Sender: FDA-Public Use
  Company Number: PHEH2009US18670

PATIENT
  Age: 50 Year
  Sex: Male
  Weight: 85 kg

DRUGS (1)
  1. EXJADE (*CGP 72670*) UNKNOWN, 500/125MG [Suspect]
     Indication: IRON OVERLOAD
     Dosage: 1625 MG, QD, ORAL
     Route: 048
     Dates: start: 20091216, end: 20100125

REACTIONS (5)
  - SICKLE CELL ANAEMIA WITH CRISIS [None]
  - MALAISE [None]
  - ABDOMINAL DISCOMFORT [None]
  - VOMITING [None]
  - DIARRHOEA [None]
